FAERS Safety Report 10544199 (Version 2)
Quarter: 2014Q4

REPORT INFORMATION
  Report Type: Spontaneous
  Country: JP (occurrence: JP)
  Receive Date: 20141027
  Receipt Date: 20141111
  Transmission Date: 20150529
  Serious: Yes (Other)
  Sender: FDA-Public Use
  Company Number: JP-DSJP-DSJ-2014-126324

PATIENT

DRUGS (12)
  1. PIOGLITAZONE                       /01460202/ [Suspect]
     Active Substance: PIOGLITAZONE HYDROCHLORIDE
     Indication: HYPERLIPIDAEMIA
     Dosage: 7.5MG/DAY
     Route: 065
  2. PIOGLITAZONE                       /01460202/ [Suspect]
     Active Substance: PIOGLITAZONE HYDROCHLORIDE
     Dosage: 15MG/DAY
     Route: 065
  3. FENOFIBRATE. [Suspect]
     Active Substance: FENOFIBRATE
     Indication: PRODUCT USED FOR UNKNOWN INDICATION
     Dosage: UNK
     Route: 065
  4. ASPIRINE [Concomitant]
     Active Substance: ASPIRIN
     Indication: PRODUCT USED FOR UNKNOWN INDICATION
     Dosage: UNK
     Route: 065
  5. OMEPRAZOLE. [Concomitant]
     Active Substance: OMEPRAZOLE
     Indication: PRODUCT USED FOR UNKNOWN INDICATION
     Dosage: UNK
     Route: 065
  6. OLMETEC [Suspect]
     Active Substance: OLMESARTAN MEDOXOMIL
     Indication: PRODUCT USED FOR UNKNOWN INDICATION
     Dosage: UNK
     Route: 065
  7. LEVOTHYROXINE                      /00068002/ [Concomitant]
     Indication: PRODUCT USED FOR UNKNOWN INDICATION
     Dosage: UNK
     Route: 065
  8. GLIMEPIRIDE. [Concomitant]
     Active Substance: GLIMEPIRIDE
     Indication: DIABETES MELLITUS MANAGEMENT
     Dosage: 1MG/DAY
     Route: 065
  9. PIOGLITAZONE                       /01460202/ [Suspect]
     Active Substance: PIOGLITAZONE HYDROCHLORIDE
     Indication: DIABETES MELLITUS MANAGEMENT
     Dosage: 15MG/DAY
     Route: 065
  10. TICLOPIDINE                        /00543202/ [Concomitant]
     Indication: PRODUCT USED FOR UNKNOWN INDICATION
     Dosage: UNK
     Route: 065
  11. GLIMEPIRIDE. [Concomitant]
     Active Substance: GLIMEPIRIDE
     Indication: HYPERLIPIDAEMIA
     Dosage: 0.5MG/DAY
     Route: 065
  12. PITAVASTATIN [Concomitant]
     Active Substance: PITAVASTATIN
     Indication: PRODUCT USED FOR UNKNOWN INDICATION
     Dosage: UNK
     Route: 065

REACTIONS (2)
  - White blood cell count decreased [Recovered/Resolved]
  - Platelet count decreased [Recovered/Resolved]
